FAERS Safety Report 11867866 (Version 2)
Quarter: 2016Q1

REPORT INFORMATION
  Report Type: Spontaneous
  Country: JP (occurrence: JP)
  Receive Date: 20151224
  Receipt Date: 20160205
  Transmission Date: 20160526
  Serious: Yes (Hospitalization, Other)
  Sender: FDA-Public Use
  Company Number: JP-GLAXOSMITHKLINE-JP2015JPN178906

PATIENT
  Age: 45 Year
  Sex: Female

DRUGS (6)
  1. NAUZELIN [Concomitant]
     Active Substance: DOMPERIDONE
     Dosage: 5 MG, BID
  2. LAMICTAL [Suspect]
     Active Substance: LAMOTRIGINE
     Dosage: 25 MG, QD
     Route: 048
     Dates: start: 20140125, end: 20140218
  3. DEPAKENE [Concomitant]
     Active Substance: VALPROIC ACID
     Dosage: 100 MG, BID
  4. MAGLAX [Concomitant]
     Active Substance: MAGNESIUM OXIDE
     Dosage: 1000 MG, QD
  5. LAMICTAL [Suspect]
     Active Substance: LAMOTRIGINE
     Indication: BIPOLAR DISORDER
     Dosage: 25 MG, QOD
     Route: 048
     Dates: start: 20140111, end: 20140124
  6. EVAMYL [Concomitant]
     Active Substance: LORMETAZEPAM
     Dosage: 2 DF, QD

REACTIONS (3)
  - Drug reaction with eosinophilia and systemic symptoms [Unknown]
  - Rash [Recovered/Resolved]
  - Hyperthermia [Recovered/Resolved]

NARRATIVE: CASE EVENT DATE: 20140204
